FAERS Safety Report 15537461 (Version 3)
Quarter: 2019Q1

REPORT INFORMATION
  Report Type: Spontaneous
  Country: US (occurrence: US)
  Receive Date: 20181022
  Receipt Date: 20190320
  Transmission Date: 20190417
  Serious: Yes (Hospitalization, Other)
  Sender: FDA-Public Use
  Company Number: US-DSJP-DSU-2017-139490

PATIENT

DRUGS (2)
  1. BENICAR [Suspect]
     Active Substance: OLMESARTAN MEDOXOMIL
     Dosage: 1/2 TABLET
  2. BENICAR [Suspect]
     Active Substance: OLMESARTAN MEDOXOMIL
     Indication: BLOOD PRESSURE MANAGEMENT
     Dosage: 40 MG, QD
     Dates: start: 200406

REACTIONS (7)
  - Product administration error [Unknown]
  - Crohn^s disease [Not Recovered/Not Resolved]
  - Sprue-like enteropathy [Unknown]
  - Large intestine polyp [Recovered/Resolved]
  - Peptic ulcer [Unknown]
  - Haemorrhoids [Recovered/Resolved]
  - Coeliac disease [Not Recovered/Not Resolved]

NARRATIVE: CASE EVENT DATE: 2008
